FAERS Safety Report 9471025 (Version 1)
Quarter: 2013Q3

REPORT INFORMATION
  Report Type: Spontaneous
  Country: CA (occurrence: None)
  Receive Date: 20130816
  Receipt Date: 20130816
  Transmission Date: 20140515
  Serious: Yes (Hospitalization, Other)
  Sender: FDA-Public Use
  Company Number: 2013-002590

PATIENT
  Sex: Female

DRUGS (13)
  1. DIDROCAL [Suspect]
     Route: 048
     Dates: end: 201105
  2. RITUXAN [Suspect]
     Indication: POLYARTERITIS NODOSA
     Dates: start: 20110518
  3. CELLCEPT [Suspect]
  4. NORVASC (AMLODIPINE BESILATE) [Concomitant]
  5. ATORVASTATIN (ATORVASTATIN) [Concomitant]
  6. CORTEF/00028601/ HYDROCORTISONE [Concomitant]
  7. CALCIUM (CALCIUM) [Concomitant]
  8. MAGNESIUM(MAGNESIUM) [Concomitant]
  9. VITAMIN D/00318501/COLECALCIFEROL) [Concomitant]
  10. METFORMIN (METFORMIN) [Concomitant]
  11. DIPHENHYDRAMINE HCL (DIPHENHYDRAMINE HYDROCHLORIDE) [Concomitant]
  12. ACETAMINOPHEN (PARACETAMOL) [Concomitant]
  13. METHYPREDNISOLONE (METHYPREDNISOLONE) [Concomitant]

REACTIONS (2)
  - Adrenal neoplasm [None]
  - Drug ineffective [None]
